FAERS Safety Report 4732544-7 (Version None)
Quarter: 2005Q3

REPORT INFORMATION
  Report Type: 
  Country: None (occurrence: None)
  Receive Date: 20050803
  Receipt Date: 20050726
  Transmission Date: 20060218
  Serious: Yes (Death)
  Sender: FDA-Public Use
  Company Number: JP-GLAXOSMITHKLINE-B0389131A

PATIENT
  Age: 56 Year
  Sex: Male

DRUGS (7)
  1. EPIVIR [Suspect]
     Indication: HIV INFECTION
     Dosage: 150MG TWICE PER DAY
     Route: 048
     Dates: start: 20040228, end: 20040812
  2. ZERIT [Suspect]
     Indication: HIV INFECTION
     Dosage: 60MG PER DAY
     Route: 048
     Dates: start: 20040228, end: 20040812
  3. KALETRA [Suspect]
     Indication: HIV INFECTION
     Dosage: 10ML PER DAY
     Route: 048
     Dates: start: 20040416, end: 20040812
  4. VIRACEPT [Concomitant]
     Indication: HIV INFECTION
     Dosage: 2500MG PER DAY
     Route: 048
     Dates: start: 20040324, end: 20040415
  5. NORVIR [Concomitant]
     Indication: HIV INFECTION
     Dosage: 100MG PER DAY
     Route: 048
     Dates: start: 20040228, end: 20040323
  6. REYATAZ [Concomitant]
     Indication: HIV INFECTION
     Dosage: 400MG PER DAY
     Route: 048
     Dates: start: 20040228, end: 20040323
  7. VALPROIC ACID [Concomitant]
     Indication: CONVULSION PROPHYLAXIS
     Dosage: 300MG TWICE PER DAY
     Route: 048
     Dates: start: 20040402, end: 20040506

REACTIONS (2)
  - COMA [None]
  - PROGRESSIVE MULTIFOCAL LEUKOENCEPHALOPATHY [None]
